FAERS Safety Report 9222748 (Version 1)
Quarter: 2013Q2

REPORT INFORMATION
  Report Type: Report from Study
  Country: PL (occurrence: PL)
  Receive Date: 20130410
  Receipt Date: 20130410
  Transmission Date: 20140414
  Serious: Yes (Death, Life-Threatening, Hospitalization, Disabling)
  Sender: FDA-Public Use
  Company Number: PL-ROCHE-1208339

PATIENT
  Age: 68 Year
  Sex: Female
  Weight: 65 kg

DRUGS (5)
  1. ACTILYSE [Suspect]
     Indication: ISCHAEMIC STROKE
     Route: 042
     Dates: start: 20031219, end: 20031220
  2. KALIUM (POTASSIUM CHLORIDE) [Concomitant]
     Indication: HYPOKALAEMIA
     Route: 048
     Dates: start: 20031219, end: 20031229
  3. TICLOPIDINE [Concomitant]
     Indication: CEREBROVASCULAR ACCIDENT
     Route: 048
     Dates: start: 20031221, end: 20031221
  4. INSULIN ACTRAPID HUMAN [Concomitant]
     Indication: DIABETES MELLITUS
     Dosage: 28 U
     Route: 058
     Dates: start: 20031222, end: 20031229
  5. INSULIN MIXTARD [Concomitant]
     Indication: DIABETES MELLITUS
     Dosage: 26 U,
     Route: 058
     Dates: start: 20031222, end: 20031229

REACTIONS (4)
  - Myocardial infarction [Fatal]
  - Acute respiratory distress syndrome [Not Recovered/Not Resolved]
  - Gastrointestinal haemorrhage [Recovered/Resolved]
  - Petechiae [Not Recovered/Not Resolved]
